FAERS Safety Report 6073246-7 (Version None)
Quarter: 2009Q1

REPORT INFORMATION
  Report Type: 
  Country: None (occurrence: None)
  Receive Date: 20090211
  Receipt Date: 20081216
  Transmission Date: 20090719
  Serious: No
  Sender: FDA-Public Use
  Company Number: A0760451A

PATIENT
  Age: 73 Year
  Sex: Female

DRUGS (3)
  1. ALTABAX [Suspect]
     Route: 061
     Dates: start: 20081214
  2. FOSAMAX [Concomitant]
  3. LEVOTHYROXINE SODIUM [Concomitant]

REACTIONS (4)
  - DRUG INEFFECTIVE [None]
  - LIP EXFOLIATION [None]
  - LIP SWELLING [None]
  - THERAPEUTIC RESPONSE UNEXPECTED [None]
